FAERS Safety Report 8235817-9 (Version None)
Quarter: 2012Q1

REPORT INFORMATION
  Report Type: 
  Country: None (occurrence: None)
  Receive Date: 20120326
  Receipt Date: 20120319
  Transmission Date: 20120608
  Serious: Yes (Other)
  Sender: FDA-Public Use
  Company Number: JP-PFIZER INC-2012072723

PATIENT
  Sex: Female

DRUGS (2)
  1. MEDROL [Suspect]
     Indication: ECZEMA
     Route: 048
  2. MEDROL [Suspect]
     Indication: PRURITUS

REACTIONS (6)
  - PHOTODERMATOSIS [None]
  - ALOPECIA [None]
  - FATIGUE [None]
  - PAIN IN EXTREMITY [None]
  - MALAISE [None]
  - DRUG INEFFECTIVE [None]
